FAERS Safety Report 9281433 (Version 1)
Quarter: 2013Q2

REPORT INFORMATION
  Report Type: Spontaneous
  Country: US (occurrence: US)
  Receive Date: 20130509
  Receipt Date: 20130509
  Transmission Date: 20140414
  Serious: Yes (Death, Hospitalization)
  Sender: FDA-Public Use
  Company Number: US-BAXTER-2013BAX016644

PATIENT
  Age: 64 Year
  Sex: Male

DRUGS (2)
  1. DIANEAL LOW CALCIUM [Suspect]
     Indication: PERITONEAL DIALYSIS
     Route: 033
     Dates: start: 2011, end: 20121006
  2. DIANEAL LOW CALCIUM [Suspect]
     Route: 033
     Dates: start: 2011, end: 20121006

REACTIONS (4)
  - Lymphoma [Fatal]
  - Renal failure chronic [Fatal]
  - Mediastinal mass [Recovering/Resolving]
  - Infection in an immunocompromised host [Unknown]
